FAERS Safety Report 5190860-1 (Version None)
Quarter: 2007Q1

REPORT INFORMATION
  Report Type: 
  Country: None (occurrence: None)
  Receive Date: 20061222
  Receipt Date: 20061211
  Transmission Date: 20070707
  Serious: Yes (Hospitalization, Other)
  Sender: FDA-Public Use
  Company Number: US-SHR-US-2006-022534

PATIENT
  Age: 59 Year
  Sex: Female
  Weight: 74.83 kg

DRUGS (14)
  1. BETASERON [Suspect]
     Indication: RELAPSING-REMITTING MULTIPLE SCLEROSIS
     Dosage: 8 MIU, EVERY 2D
     Route: 058
     Dates: start: 20060715
  2. ATENOLOL [Concomitant]
     Dosage: 25 MG, 1X/DAY
     Route: 048
  3. QUINAPRIL [Concomitant]
     Dosage: 10 MG, 1X/DAY
     Route: 048
  4. TRIAMCINOLONE HEXACETONIDE [Concomitant]
     Dosage: UNK, UNK
     Route: 048
  5. PRILOSEC [Concomitant]
     Dosage: 40 UNK, 2X/DAY
     Route: 048
  6. BACLOFEN [Concomitant]
     Dosage: 20 MG, 3X/DAY
  7. PAXIL [Concomitant]
     Dosage: 10 MG, 1X/DAY
  8. TRAZODONE HCL [Concomitant]
     Dosage: 50 MG, 2X/DAY, BED TIME
  9. NEURONTIN [Concomitant]
     Dosage: 300 A?G, 2X/DAY
  10. PROVIGIL [Concomitant]
     Dosage: 200 A?G, 2X/DAY
  11. MICRO-K [Concomitant]
     Dosage: 10 MG, 3X/DAY
  12. DETROL [Concomitant]
     Dosage: 1X/DAY, BEDTIME
  13. ZOSYN [Concomitant]
     Route: 042
  14. AUGMENTIN                               /SCH/ [Concomitant]
     Dosage: 875 MG, UNK
     Route: 048

REACTIONS (12)
  - ABDOMINAL DISCOMFORT [None]
  - ABSCESS [None]
  - ARTHROPOD BITE [None]
  - BLADDER SPASM [None]
  - DIVERTICULAR FISTULA [None]
  - DIVERTICULITIS [None]
  - LOCALISED INFECTION [None]
  - MALAISE [None]
  - MICTURITION DISORDER [None]
  - URINARY INCONTINENCE [None]
  - VESICAL FISTULA [None]
  - WHITE BLOOD CELLS URINE POSITIVE [None]
